FAERS Safety Report 12540898 (Version 3)
Quarter: 2018Q2

REPORT INFORMATION
  Report Type: Report from Study
  Country: JP (occurrence: JP)
  Receive Date: 20160708
  Receipt Date: 20180508
  Transmission Date: 20180711
  Serious: Yes (Death, Hospitalization, Other)
  Sender: FDA-Public Use
  Company Number: JP-INCYTE CORPORATION-2016IN004161

PATIENT

DRUGS (7)
  1. JAKAVI [Suspect]
     Active Substance: RUXOLITINIB
     Dosage: 5 MG, BID
     Route: 048
     Dates: start: 20141114, end: 20141201
  2. JAKAVI [Suspect]
     Active Substance: RUXOLITINIB
     Dosage: 30 MG, QD
  3. JAKAVI [Suspect]
     Active Substance: RUXOLITINIB
     Dosage: UNK, QD
     Route: 048
  4. HYDREA [Concomitant]
     Active Substance: HYDROXYUREA
     Indication: PRIMARY MYELOFIBROSIS
     Dosage: 500 MG, UNK
     Route: 048
     Dates: start: 20140718, end: 20141002
  5. METABOLIC CLA [Suspect]
     Active Substance: LINOLEIC ACID
     Indication: PRODUCT USED FOR UNKNOWN INDICATION
     Dosage: UNK
     Route: 065
  6. JAKAVI [Suspect]
     Active Substance: RUXOLITINIB
     Dosage: 15 MG, BID
     Route: 048
     Dates: start: 20150121
  7. JAKAVI [Suspect]
     Active Substance: RUXOLITINIB
     Indication: PRIMARY MYELOFIBROSIS
     Dosage: 15 MG, BID
     Route: 048
     Dates: start: 20140919, end: 20141016

REACTIONS (14)
  - Hepatic function abnormal [Recovering/Resolving]
  - Central nervous system lymphoma [Fatal]
  - Haemorrhage intracranial [Recovered/Resolved]
  - Anaemia [Recovering/Resolving]
  - Blood pressure systolic increased [Unknown]
  - Primary myelofibrosis [Fatal]
  - Dizziness [Unknown]
  - White blood cell count increased [Not Recovered/Not Resolved]
  - Second primary malignancy [Fatal]
  - Thrombocytopenia [Recovered/Resolved]
  - Abnormal behaviour [Unknown]
  - Speech disorder [Unknown]
  - Subdural haematoma [Not Recovered/Not Resolved]
  - Platelet count decreased [Recovering/Resolving]

NARRATIVE: CASE EVENT DATE: 201409
